FAERS Safety Report 7783191-4 (Version None)
Quarter: 2011Q3

REPORT INFORMATION
  Report Type: 
  Country: None (occurrence: None)
  Receive Date: 20110928
  Receipt Date: 20091228
  Transmission Date: 20111222
  Serious: No
  Sender: FDA-Public Use
  Company Number: US-MYLANLABS-2009S1022022

PATIENT
  Age: 69 Year
  Sex: Male

DRUGS (2)
  1. NITRGLYCERIN TRANSDERMAL SYSTEM [Suspect]
     Indication: ANGINA PECTORIS
     Dosage: 12HRS ON, 12HRS OFF
     Route: 062
     Dates: start: 20091216
  2. KEFLEX [Concomitant]
     Indication: LOCALISED INFECTION
     Route: 048

REACTIONS (3)
  - APPLICATION SITE VESICLES [None]
  - APPLICATION SITE BLEEDING [None]
  - APPLICATION SITE PRURITUS [None]
